FAERS Safety Report 9304413 (Version 2)
Quarter: 2013Q2

REPORT INFORMATION
  Report Type: Other
  Country: DE (occurrence: DE)
  Receive Date: 20130522
  Receipt Date: 20130529
  Transmission Date: 20140414
  Serious: Yes (Other)
  Sender: FDA-Public Use
  Company Number: DE-NICOBRDEVP-2013-08845

PATIENT
  Age: 20 Year
  Sex: Female
  Weight: 65 kg

DRUGS (5)
  1. TOPIRAMATE (UNKNOWN) [Suspect]
     Indication: EPILEPSY
     Dosage: 100 MG, DAILY
     Route: 048
     Dates: start: 20121015, end: 20130305
  2. LAMOTRIGINE (UNKNOWN) [Suspect]
     Indication: EPILEPSY
     Dosage: 400 MG, DAILY
     Route: 048
     Dates: start: 20121015, end: 20130305
  3. FOLIC ACID [Concomitant]
     Indication: PROPHYLAXIS OF NEURAL TUBE DEFECT
     Dosage: 5 MG, DAILY
     Route: 048
     Dates: start: 20121120, end: 20130305
  4. CEFUROXIM                          /00454602/ [Concomitant]
     Indication: BACTERIAL INFECTION
     Dosage: 1500 MG, UNK
     Route: 042
     Dates: start: 20130304, end: 20130305
  5. HYOSCINE BUTYLBROMIDE [Concomitant]
     Indication: PAIN
     Dosage: 60(MG/D-3X20)
     Route: 042
     Dates: start: 20130304, end: 20130305

REACTIONS (2)
  - Abortion late [Recovered/Resolved]
  - Maternal exposure during pregnancy [Recovered/Resolved]
